FAERS Safety Report 4829352-5 (Version None)
Quarter: 2005Q4

REPORT INFORMATION
  Report Type: 
  Country: None (occurrence: None)
  Receive Date: 20051116
  Receipt Date: 20051018
  Transmission Date: 20060501
  Serious: Yes (Hospitalization)
  Sender: FDA-Public Use
  Company Number: ES-GILEAD-2005-0008826

PATIENT
  Sex: Female

DRUGS (4)
  1. TENOFOVIR DISOPROXIL FUMARATE [Suspect]
     Indication: HIV INFECTION
     Route: 048
     Dates: start: 20020709, end: 20051014
  2. DIDANOSINE ENTERIC COATED [Concomitant]
     Indication: HIV INFECTION
     Route: 048
     Dates: start: 20020709, end: 20051014
  3. KALETRA [Concomitant]
     Indication: HIV INFECTION
     Route: 048
     Dates: start: 20020626, end: 20051014
  4. SEPTRA [Concomitant]
     Dates: start: 20050317, end: 20051014

REACTIONS (1)
  - METABOLIC ACIDOSIS [None]
